FAERS Safety Report 23408898 (Version 1)
Quarter: 2024Q1

REPORT INFORMATION
  Report Type: Spontaneous
  Country: PR (occurrence: None)
  Receive Date: 20240115
  Receipt Date: 20240115
  Transmission Date: 20240410
  Serious: Yes (Other)
  Sender: FDA-Public Use
  Company Number: None

PATIENT
  Age: 66 Year
  Sex: Male
  Weight: 61.65 kg

DRUGS (4)
  1. NINLARO [Suspect]
     Active Substance: IXAZOMIB CITRATE
     Indication: Plasma cell myeloma
     Dosage: OTHER FREQUENCY : DAYS 1, 8 AND 15;?
     Route: 048
     Dates: start: 20221224, end: 20240110
  2. REVLIMID [Suspect]
     Active Substance: LENALIDOMIDE
  3. NIFEDIPINE [Concomitant]
     Active Substance: NIFEDIPINE
  4. TOLTERODINE [Concomitant]
     Active Substance: TOLTERODINE

REACTIONS (4)
  - Neutropenia [None]
  - Thrombocytopenia [None]
  - Therapy cessation [None]
  - White blood cell count decreased [None]

NARRATIVE: CASE EVENT DATE: 20240115
